FAERS Safety Report 4411918-8 (Version None)
Quarter: 2004Q3

REPORT INFORMATION
  Report Type: 
  Country: None (occurrence: None)
  Receive Date: 20040730
  Receipt Date: 20040218
  Transmission Date: 20050211
  Serious: No
  Sender: FDA-Public Use
  Company Number: US-GLAXOSMITHKLINE-A0498761A

PATIENT
  Age: 35 Year
  Sex: Female

DRUGS (9)
  1. ZANTAC [Suspect]
     Indication: ILL-DEFINED DISORDER
     Dosage: 300MG TWICE PER DAY
     Route: 048
  2. NEXIUM [Concomitant]
  3. POTASSIUM CHLORIDE [Concomitant]
  4. HYDROCHLOROTHIAZIDE [Concomitant]
  5. MOTRIN [Concomitant]
  6. SEROQUEL [Concomitant]
  7. NORVASC [Concomitant]
  8. ELAVIL [Concomitant]
  9. CATAPRES [Concomitant]

REACTIONS (1)
  - DRUG SCREEN FALSE POSITIVE [None]
